FAERS Safety Report 4968740-3 (Version None)
Quarter: 2006Q2

REPORT INFORMATION
  Report Type: 
  Country: None (occurrence: None)
  Receive Date: 20060411
  Receipt Date: 20060404
  Transmission Date: 20061013
  Serious: Yes (Other)
  Sender: FDA-Public Use
  Company Number: US-KINGPHARMUSA00001-K200600413

PATIENT
  Age: 61 Year
  Sex: Male

DRUGS (7)
  1. ALTACE [Suspect]
     Dosage: 2.5 MG, QD
     Route: 048
     Dates: start: 20060301
  2. ASPIRIN [Concomitant]
     Dosage: 75 MG, QD
     Route: 048
  3. ATORVASTATIN CALCIUM [Concomitant]
     Dosage: 20 MG, QD
     Route: 048
  4. CLOPIDOGREL [Concomitant]
     Dosage: 75 MG, QD
     Route: 048
  5. GLYCERYL TRINITRATE [Concomitant]
     Dosage: 400 UG, QD
     Route: 048
  6. ISOSORBIDE MONONITRATE [Concomitant]
     Dosage: 40 MG, QD
  7. NICORANDIL [Concomitant]
     Dosage: 20 MG, QD
     Route: 048

REACTIONS (3)
  - ORAL SOFT TISSUE DISORDER [None]
  - PAIN IN EXTREMITY [None]
  - SKIN EXFOLIATION [None]
